FAERS Safety Report 8936950 (Version 1)
Quarter: 2012Q4

REPORT INFORMATION
  Report Type: 
  Country: IT (occurrence: IT)
  Receive Date: 20121130
  Receipt Date: 20121130
  Transmission Date: 20130627
  Serious: Yes (Hospitalization)
  Sender: FDA-Public Use
  Company Number: IT-009507513-1211ITA009338

PATIENT
  Sex: Female

DRUGS (1)
  1. ZOELY [Suspect]
     Route: 048

REACTIONS (1)
  - Hepatotoxicity [Unknown]
